FAERS Safety Report 5284278-0 (Version None)
Quarter: 2007Q2

REPORT INFORMATION
  Report Type: 
  Country: None (occurrence: None)
  Receive Date: 20070403
  Receipt Date: 20070321
  Transmission Date: 20071010
  Serious: Yes (Hospitalization)
  Sender: FDA-Public Use
  Company Number: PHEH2007US03368

PATIENT
  Sex: Female

DRUGS (2)
  1. CLOZARIL [Suspect]
     Indication: BIPOLAR DISORDER
     Dates: end: 20070314
  2. LITHIUM CARBONATE [Suspect]
     Dates: end: 20070314

REACTIONS (1)
  - RENAL FAILURE [None]
